FAERS Safety Report 8101224-2 (Version None)
Quarter: 2012Q1

REPORT INFORMATION
  Report Type: 
  Country: None (occurrence: None)
  Receive Date: 20120129
  Receipt Date: 20111013
  Transmission Date: 20120608
  Serious: No
  Sender: FDA-Public Use
  Company Number: US-ABBOTT-11P-163-0864162-00

PATIENT
  Age: 56 Year
  Sex: Male

DRUGS (8)
  1. HUMIRA [Suspect]
     Indication: CROHN'S DISEASE
     Dates: start: 20110928, end: 20110928
  2. SEROQUEL [Concomitant]
     Indication: ANTIDEPRESSANT THERAPY
     Dosage: XR DAILY
  3. PROZAC [Concomitant]
     Indication: ANTIDEPRESSANT THERAPY
     Dosage: DAILY
  4. PRILOSEC [Concomitant]
     Indication: DYSPEPSIA
     Dosage: DAILY
  5. HUMIRA [Suspect]
     Dates: start: 20111013
  6. SIMVASTATIN [Concomitant]
     Indication: BLOOD CHOLESTEROL
     Dosage: DAILY
  7. HUMIRA [Suspect]
  8. IBUPROFEN (ADVIL) [Concomitant]
     Indication: PAIN
     Dosage: 2-3 TIMES A WEEK

REACTIONS (4)
  - INJECTION SITE PAIN [None]
  - WRONG TECHNIQUE IN DRUG USAGE PROCESS [None]
  - INCORRECT ROUTE OF DRUG ADMINISTRATION [None]
  - INCORRECT DOSE ADMINISTERED [None]
